FAERS Safety Report 4587937-8 (Version None)
Quarter: 2005Q1

REPORT INFORMATION
  Report Type: 
  Country: None (occurrence: None)
  Receive Date: 20050215
  Receipt Date: 20050201
  Transmission Date: 20050727
  Serious: Yes (Hospitalization, Disabling, Other)
  Sender: FDA-Public Use
  Company Number: 2005024624

PATIENT
  Age: 86 Year
  Sex: Male
  Weight: 77.1115 kg

DRUGS (5)
  1. ZOLOFT [Suspect]
     Indication: DEPRESSION
     Dosage: 25 MG (25 MG, DAILY INTERVAL :EVERY DAY), ORAL
     Route: 048
     Dates: start: 20040701
  2. OLANZAPINE [Suspect]
     Indication: ILL-DEFINED DISORDER
     Dosage: ORAL
     Route: 048
     Dates: start: 20040101, end: 20050101
  3. PIOGLITAZONE HCL [Concomitant]
  4. GLYBURIDE [Concomitant]
  5. TAMSULOSIN HYDROCHLORIDE (TAMSULOSIN HYDROCHLORIDE) [Concomitant]

REACTIONS (13)
  - BLOOD ALKALINE PHOSPHATASE DECREASED [None]
  - DEMENTIA [None]
  - FALL [None]
  - HYPOKALAEMIA [None]
  - METABOLIC DISORDER [None]
  - MUSCULOSKELETAL STIFFNESS [None]
  - PARKINSON'S DISEASE [None]
  - PNEUMONIA [None]
  - SEROTONIN SYNDROME [None]
  - TREMOR [None]
  - URINARY RETENTION [None]
  - WEIGHT INCREASED [None]
  - WHEELCHAIR USER [None]
